FAERS Safety Report 17523313 (Version 1)
Quarter: 2020Q1

REPORT INFORMATION
  Report Type: Spontaneous
  Country: NL (occurrence: FR)
  Receive Date: 20200310
  Receipt Date: 20200310
  Transmission Date: 20200409
  Serious: Yes (Other)
  Sender: FDA-Public Use
  Company Number: FR-FRESENIUS KABI-FK202002238

PATIENT
  Age: 1 Day
  Sex: Male

DRUGS (1)
  1. SODIUM CHLORIDE (MANUFACTURER UNKNOWN) [Suspect]
     Active Substance: SODIUM CHLORIDE
     Indication: HYPONATRAEMIA
     Dosage: 10 PERCENT SOLUTION, FLOW RATE OF 2ML / HOUR
     Route: 041
     Dates: start: 20191120, end: 20191121

REACTIONS (3)
  - Product administration error [Recovered/Resolved]
  - Hypernatraemia [Recovered/Resolved]
  - Product prescribing error [Recovered/Resolved]

NARRATIVE: CASE EVENT DATE: 20191120
